FAERS Safety Report 17211112 (Version 1)
Quarter: 2019Q4

REPORT INFORMATION
  Report Type: Other
  Country: US (occurrence: US)
  Receive Date: 20191228
  Receipt Date: 20191228
  Transmission Date: 20200122
  Serious: Yes (Death, Life-Threatening, Hospitalization, Other)
  Sender: FDA-Public Use
  Company Number: US-WES PHARMA INC-2078276

PATIENT
  Age: 40 Year
  Sex: Female

DRUGS (3)
  1. OXYCODONE HYDROCHLORIDE. [Suspect]
     Active Substance: OXYCODONE HYDROCHLORIDE
     Indication: PRODUCT USED FOR UNKNOWN INDICATION
     Route: 065
  2. PROMETHAZINE [Suspect]
     Active Substance: PROMETHAZINE HYDROCHLORIDE
     Route: 065
  3. ALPRAZOLAM. [Suspect]
     Active Substance: ALPRAZOLAM
     Route: 065

REACTIONS (19)
  - Myocardial ischaemia [Unknown]
  - Depressed level of consciousness [Unknown]
  - Gastrointestinal haemorrhage [Unknown]
  - Seizure [Unknown]
  - Tachycardia [Unknown]
  - Myocardial infarction [Unknown]
  - Acute lung injury [Unknown]
  - Hepatotoxicity [Unknown]
  - Coma [Unknown]
  - Acute kidney injury [Unknown]
  - Rhabdomyolysis [Unknown]
  - Thrombocytopenia [Unknown]
  - Acute respiratory distress syndrome [Unknown]
  - Delirium [Unknown]
  - Metabolic acidosis [Unknown]
  - Anion gap [Unknown]
  - Hypotension [Fatal]
  - Intestinal ischaemia [Unknown]
  - Hypotension [Unknown]
